FAERS Safety Report 16583970 (Version 1)
Quarter: 2019Q3

REPORT INFORMATION
  Report Type: Spontaneous
  Country: DE (occurrence: DE)
  Receive Date: 20190717
  Receipt Date: 20190717
  Transmission Date: 20191004
  Serious: Yes (Death, Hospitalization)
  Sender: FDA-Public Use
  Company Number: DE-TEVA-2019-DE-1077965

PATIENT
  Age: 80 Year
  Sex: Female

DRUGS (4)
  1. METOCLOPRAMID [Concomitant]
     Active Substance: METOCLOPRAMIDE
     Dosage: NK MG, NEED
  2. METAMIZOL [Concomitant]
     Active Substance: METAMIZOLE SODIUM
     Dosage: 500 MG, 1-1-1-0
  3. LORAZEPAM. [Suspect]
     Active Substance: LORAZEPAM
     Dosage: NK MG, 0-0-0-1
  4. MORPHIN [Suspect]
     Active Substance: MORPHINE
     Dosage: 30 MG, 1-1-1-0

REACTIONS (1)
  - Fall [Unknown]

NARRATIVE: CASE EVENT DATE: 20180131
